FAERS Safety Report 8418251-8 (Version None)
Quarter: 2012Q2

REPORT INFORMATION
  Report Type: 
  Country: None (occurrence: None)
  Receive Date: 20120607
  Receipt Date: 20120526
  Transmission Date: 20120825
  Serious: Yes (Other)
  Sender: FDA-Public Use
  Company Number: CA-JNJFOC-20120519602

PATIENT
  Sex: Male
  Weight: 57 kg

DRUGS (1)
  1. REMICADE [Suspect]
     Indication: CROHN'S DISEASE
     Dosage: ONCE EVERY 4-5 WEEKS
     Route: 042
     Dates: start: 20100201

REACTIONS (2)
  - EMOTIONAL DISTRESS [None]
  - DRUG INEFFECTIVE [None]
